FAERS Safety Report 9502714 (Version 1)
Quarter: 2013Q3

REPORT INFORMATION
  Report Type: Spontaneous
  Country: FR (occurrence: FR)
  Receive Date: 20130906
  Receipt Date: 20130906
  Transmission Date: 20140515
  Serious: Yes (Hospitalization)
  Sender: FDA-Public Use
  Company Number: FR-ASTRAZENECA-2013SE66525

PATIENT
  Age: 29836 Day
  Sex: Female

DRUGS (5)
  1. ENTOCORT [Suspect]
     Route: 048
     Dates: start: 20130516, end: 20130621
  2. HYDROCORTISONE ROUSSEL [Suspect]
     Route: 048
     Dates: start: 20130516
  3. HYDROCORTISONE ROUSSEL [Suspect]
     Route: 048
  4. LOXEN [Concomitant]
  5. DIFFU K [Concomitant]

REACTIONS (2)
  - Generalised oedema [Recovered/Resolved]
  - Fluid retention [Recovered/Resolved]
